FAERS Safety Report 4312439-3 (Version None)
Quarter: 2004Q1

REPORT INFORMATION
  Report Type: 
  Country: None (occurrence: None)
  Receive Date: 20040305
  Receipt Date: 20040213
  Transmission Date: 20041129
  Serious: Yes (Hospitalization)
  Sender: FDA-Public Use
  Company Number: JP-ROCHE-358908

PATIENT
  Age: 72 Year
  Sex: Male
  Weight: 69 kg

DRUGS (2)
  1. TAMIFLU [Suspect]
     Route: 048
     Dates: start: 20040204, end: 20040204
  2. CRAVIT [Suspect]
     Route: 048
     Dates: start: 20040204, end: 20040204

REACTIONS (2)
  - DYSSTASIA [None]
  - RHABDOMYOLYSIS [None]
